FAERS Safety Report 10755379 (Version 1)
Quarter: 2015Q1

REPORT INFORMATION
  Report Type: Spontaneous
  Country: US (occurrence: None)
  Receive Date: 20150123
  Receipt Date: 20150123
  Transmission Date: 20150721
  Serious: No
  Sender: FDA-Public Use
  Company Number: 2014TUS011996

PATIENT
  Sex: Male

DRUGS (2)
  1. ENTYVIO [Suspect]
     Active Substance: VEDOLIZUMAB
     Indication: COLITIS ULCERATIVE
     Dosage: FIRST DOSE, 4.8 ML STERILE H2O IN 250 ML NS/IV 30 MIN.
     Route: 042
     Dates: start: 20141117, end: 20141117
  2. XANAX [Concomitant]
     Active Substance: ALPRAZOLAM

REACTIONS (5)
  - Burning sensation [None]
  - Blood pressure increased [None]
  - Heart rate increased [None]
  - Flushing [None]
  - Hypoaesthesia [None]

NARRATIVE: CASE EVENT DATE: 20141117
